FAERS Safety Report 12991210 (Version 1)
Quarter: 2016Q4

REPORT INFORMATION
  Report Type: Spontaneous
  Country: US (occurrence: US)
  Receive Date: 20161201
  Receipt Date: 20161201
  Transmission Date: 20170207
  Serious: Yes (Hospitalization)
  Sender: FDA-Public Use
  Company Number: None

PATIENT
  Age: 23 Year
  Sex: Female
  Weight: 143.55 kg

DRUGS (1)
  1. ARIPIPRAZOLE. [Suspect]
     Active Substance: ARIPIPRAZOLE
     Indication: BIPOLAR II DISORDER
     Route: 048
     Dates: start: 20161123, end: 20161127

REACTIONS (4)
  - Lip swelling [None]
  - Product substitution issue [None]
  - Swollen tongue [None]
  - Pruritus generalised [None]

NARRATIVE: CASE EVENT DATE: 20161123
